FAERS Safety Report 10110970 (Version 2)
Quarter: 2014Q2

REPORT INFORMATION
  Report Type: Spontaneous
  Country: CH (occurrence: CH)
  Receive Date: 20140425
  Receipt Date: 20140425
  Transmission Date: 20141212
  Serious: Yes (Death)
  Sender: FDA-Public Use
  Company Number: CH-BAXTER-2014BAX015942

PATIENT
  Sex: Male

DRUGS (4)
  1. EXTRANEAL [Suspect]
     Indication: DIABETIC NEPHROPATHY
     Route: 033
     Dates: start: 20100222, end: 20130408
  2. EXTRANEAL [Suspect]
     Indication: PERITONEAL DIALYSIS
  3. PHYSIONEAL 40 CLEAR-FLEX 2.27% [Suspect]
     Indication: DIABETIC NEPHROPATHY
     Route: 033
     Dates: start: 20100222, end: 20130408
  4. PHYSIONEAL 40 CLEAR-FLEX 2.27% [Suspect]
     Indication: PERITONEAL DIALYSIS

REACTIONS (1)
  - Therapy cessation [Fatal]
